FAERS Safety Report 25268089 (Version 1)
Quarter: 2025Q2

REPORT INFORMATION
  Report Type: Spontaneous
  Country: US (occurrence: US)
  Receive Date: 20250505
  Receipt Date: 20250505
  Transmission Date: 20250716
  Serious: No
  Sender: SCPHARMACEUTICALS
  Company Number: US-SCPHARMACEUTICALS-2025-SCPH-US000050

PATIENT

DRUGS (2)
  1. FUROSCIX [Suspect]
     Active Substance: FUROSEMIDE
     Indication: Hypervolaemia
     Route: 058
     Dates: start: 20250201, end: 20250201
  2. FUROSCIX [Suspect]
     Active Substance: FUROSEMIDE
     Route: 058
     Dates: start: 20250202, end: 20250202

REACTIONS (2)
  - Infusion site pain [Recovered/Resolved]
  - Drug effect less than expected [Unknown]

NARRATIVE: CASE EVENT DATE: 20250202
